FAERS Safety Report 5233425-5 (Version None)
Quarter: 2007Q1

REPORT INFORMATION
  Report Type: 
  Country: None (occurrence: None)
  Receive Date: 20070208
  Receipt Date: 20070126
  Transmission Date: 20070707
  Serious: Yes (Hospitalization)
  Sender: FDA-Public Use
  Company Number: FR-JNJFOC-20070106951

PATIENT
  Age: 84 Year
  Sex: Female
  Weight: 71 kg

DRUGS (4)
  1. DURAGESIC-100 [Suspect]
     Indication: PSORIATIC ARTHROPATHY
     Route: 062
  2. SERESTA [Suspect]
     Indication: ANXIETY
     Route: 065
  3. LASIX [Concomitant]
     Indication: OEDEMA
     Route: 065
  4. ALDACTONE [Concomitant]
     Indication: OEDEMA
     Route: 065

REACTIONS (1)
  - DISORIENTATION [None]
